FAERS Safety Report 10239483 (Version 3)
Quarter: 2014Q3

REPORT INFORMATION
  Report Type: Spontaneous
  Country: US (occurrence: US)
  Receive Date: 20140616
  Receipt Date: 20140904
  Transmission Date: 20150326
  Serious: Yes (Death, Other)
  Sender: FDA-Public Use
  Company Number: US-009507513-2006-144385-NL

PATIENT
  Sex: Female
  Weight: 52.2 kg

DRUGS (3)
  1. NUVARING [Suspect]
     Active Substance: ETHINYL ESTRADIOL\ETONOGESTREL
     Indication: CONTRACEPTION
     Dosage: DOSE TEXT: 4 WEEKS IN/ 5 DAYS OUT, CONTINUING: NA
     Route: 067
     Dates: start: 20050614, end: 20050715
  2. KEFLEX [Concomitant]
     Active Substance: CEPHALEXIN
     Indication: ARTHROPOD BITE
     Dosage: 500 MG, TID
     Route: 048
     Dates: start: 20050620, end: 20050629
  3. MEDROL [Concomitant]
     Active Substance: METHYLPREDNISOLONE
     Indication: ARTHROPOD BITE
     Dosage: DOSE TEXT: SINGLE USE
     Route: 048
     Dates: start: 20050620, end: 20050626

REACTIONS (4)
  - Arthropod bite [Unknown]
  - Rhinitis allergic [Unknown]
  - Deep vein thrombosis [Fatal]
  - Pulmonary embolism [Fatal]

NARRATIVE: CASE EVENT DATE: 20050620
